FAERS Safety Report 14983117 (Version 1)
Quarter: 2018Q2

REPORT INFORMATION
  Report Type: Report from Study
  Country: FR (occurrence: FR)
  Receive Date: 20180607
  Receipt Date: 20180607
  Transmission Date: 20180711
  Serious: Yes (Hospitalization, Other)
  Sender: FDA-Public Use
  Company Number: FR-ACCORD-067745

PATIENT
  Sex: Male

DRUGS (12)
  1. VINCRISTINE [Suspect]
     Active Substance: VINCRISTINE
     Indication: ACUTE LYMPHOCYTIC LEUKAEMIA
     Dosage: 1.1 MG
     Route: 042
     Dates: start: 20170717, end: 20170918
  2. ACICLOVIR [Concomitant]
     Active Substance: ACYCLOVIR
  3. PARACETAMOL [Concomitant]
     Active Substance: ACETAMINOPHEN
  4. DEXAMETHASONE. [Suspect]
     Active Substance: DEXAMETHASONE
     Indication: ACUTE LYMPHOCYTIC LEUKAEMIA
     Dosage: 4.5 MG, 1X/DAY:QD
     Route: 048
     Dates: start: 20170717, end: 20170915
  5. ONDANSETRON [Concomitant]
     Active Substance: ONDANSETRON
  6. MERCAPTOPURINE/MERCAPTOPURINE ANHYDROUS [Suspect]
     Active Substance: MERCAPTOPURINE
     Indication: ACUTE LYMPHOCYTIC LEUKAEMIA
     Dosage: 50 MG
     Route: 048
     Dates: start: 20170717, end: 20171002
  7. COTRIMOXAZOLE [Concomitant]
     Active Substance: SULFAMETHOXAZOLE\TRIMETHOPRIM
  8. METHOTREXATE. [Suspect]
     Active Substance: METHOTREXATE
     Indication: ACUTE LYMPHOCYTIC LEUKAEMIA
     Dosage: ALSO RECEIVED AT DOSE 17.5 MG (ORAL) FROM 24-JUL-2017 TO 25-SEP-2017
     Route: 037
     Dates: start: 20170718, end: 20170912
  9. PEGASPARGASE [Suspect]
     Active Substance: PEGASPARGASE
     Indication: ACUTE LYMPHOCYTIC LEUKAEMIA
     Dosage: 925 IU, 1X/DAY:QD
     Route: 042
     Dates: start: 20170821, end: 20170918
  10. CEFTAZIDIME/CEFTAZIDIME PENTAHYDRATE [Concomitant]
  11. MACROGOL/MACROGOL STEARATE [Concomitant]
  12. TINZAPARIN [Concomitant]
     Active Substance: TINZAPARIN

REACTIONS (5)
  - Blood albumin decreased [None]
  - Haematocrit decreased [None]
  - Bone marrow failure [Recovered/Resolved]
  - Neutrophil count increased [None]
  - C-reactive protein increased [None]

NARRATIVE: CASE EVENT DATE: 20171002
